FAERS Safety Report 7006676-7 (Version None)
Quarter: 2010Q3

REPORT INFORMATION
  Report Type: 
  Country: None (occurrence: None)
  Receive Date: 20100921
  Receipt Date: 20100603
  Transmission Date: 20110219
  Serious: Yes (Hospitalization)
  Sender: FDA-Public Use
  Company Number: PHHO2010DE06862

PATIENT
  Sex: Female
  Weight: 70 kg

DRUGS (7)
  1. CERTICAN [Suspect]
     Indication: RENAL TRANSPLANT
     Dosage: 1.5 MG/DAY
     Route: 048
     Dates: start: 20091009
  2. MYFORTIC [Concomitant]
     Indication: RENAL TRANSPLANT
     Dosage: 1080 MG, PER DAY
     Route: 048
     Dates: start: 20090712
  3. SANDIMMUNE [Concomitant]
     Indication: RENAL TRANSPLANT
  4. PANTOPRAZOLE SODIUM [Concomitant]
     Indication: RENAL TRANSPLANT
     Dosage: 40 MG, PER DAY
     Route: 048
     Dates: start: 20090712
  5. PRAVASTATIN SODIUM [Concomitant]
  6. NORVASC [Concomitant]
  7. SUREM [Concomitant]

REACTIONS (8)
  - ABDOMINAL PAIN [None]
  - APPENDICECTOMY [None]
  - CONCOMITANT DISEASE PROGRESSION [None]
  - LEUKOCYTOSIS [None]
  - NEPHRECTOMY [None]
  - PERITONITIS [None]
  - PYREXIA [None]
  - RENAL CYST RUPTURED [None]
